FAERS Safety Report 9587511 (Version 2)
Quarter: 2014Q1

REPORT INFORMATION
  Report Type: Spontaneous
  Country: US (occurrence: US)
  Receive Date: 20131003
  Receipt Date: 20140221
  Transmission Date: 20141002
  Serious: Yes (Other)
  Sender: FDA-Public Use
  Company Number: US-BAYER-2013-118796

PATIENT
  Age: 23 Year
  Sex: Female
  Weight: 62.59 kg

DRUGS (4)
  1. MIRENA [Suspect]
     Indication: CONTRACEPTION
     Dosage: 20 MCG/24HR, CONT
     Route: 015
     Dates: start: 20110328, end: 20111025
  2. PERCOCET [Concomitant]
     Dosage: UNK
     Dates: start: 20100101
  3. IBUPROFEN [Concomitant]
     Dosage: UNK
     Dates: start: 20100101
  4. PRENATAL VITAMINS [Concomitant]
     Dosage: UNK
     Dates: start: 20100101

REACTIONS (6)
  - Uterine perforation [None]
  - Procedural pain [None]
  - Scar [None]
  - Injury [None]
  - Emotional distress [None]
  - Depression [None]
